FAERS Safety Report 4287821-3 (Version None)
Quarter: 2004Q1

REPORT INFORMATION
  Report Type: 
  Country: None (occurrence: None)
  Receive Date: 20040209
  Receipt Date: 20031002
  Transmission Date: 20041129
  Serious: No
  Sender: FDA-Public Use
  Company Number: US-GLAXOSMITHKLINE-A0428444A

PATIENT
  Age: 41 Year
  Sex: Female

DRUGS (5)
  1. PAXIL [Suspect]
     Indication: PANIC DISORDER
     Dosage: 37.5MG PER DAY
     Route: 048
     Dates: start: 20021001
  2. XANAX [Concomitant]
  3. MULTI-VITAMIN [Concomitant]
  4. VITAMIN B COMPLEX CAP [Concomitant]
  5. SOY ISOFLAVIN [Concomitant]

REACTIONS (1)
  - ALOPECIA [None]
